FAERS Safety Report 19091322 (Version 1)
Quarter: 2021Q2

REPORT INFORMATION
  Report Type: Spontaneous
  Country: NL (occurrence: NL)
  Receive Date: 20210405
  Receipt Date: 20210405
  Transmission Date: 20210717
  Serious: Yes (Life-Threatening)
  Sender: FDA-Public Use
  Company Number: NL-AMGEN-NLDSP2021049692

PATIENT
  Age: 9 Year
  Sex: Female
  Weight: 25 kg

DRUGS (11)
  1. CINACALCET HCL [Suspect]
     Active Substance: CINACALCET HYDROCHLORIDE
     Indication: HYPERPARATHYROIDISM
     Dosage: 1 X 5 MG , LATER 5 MG ODD
     Route: 065
     Dates: start: 20201104
  2. LOSARTAN. [Concomitant]
     Active Substance: LOSARTAN
     Dosage: FILMOMHULDE TABLET, 25 MG (MILLIGRAM)
  3. GENTAMICINE [GENTAMICIN SULFATE] [Concomitant]
     Active Substance: GENTAMICIN SULFATE
     Dosage: SOLUTION FOR INJECTION, 40 MG/ML (MILLIGRAM PER MILLILITER)
  4. AMLODIPINE [Concomitant]
     Active Substance: AMLODIPINE BESYLATE
     Dosage: TABLET, 10 MG (MILLIGRAM)
  5. RENVELA [Concomitant]
     Active Substance: SEVELAMER CARBONATE
     Dosage: TABLET, 800 MG (MILLIGRAM)
  6. ALFACALCIDOL [Concomitant]
     Active Substance: ALFACALCIDOL
     Dosage: SOLUTION FOR INJECTION, 2 MICROGRAM PER MILLILITER
  7. VITAMINS NOS [Concomitant]
     Active Substance: VITAMINS
     Dosage: CAPSULE
  8. CALCI CHEW D3 [Concomitant]
     Active Substance: CALCIUM CARBONATE\CHOLECALCIFEROL
     Dosage: 400IE/500MG
  9. LABETALOL [Concomitant]
     Active Substance: LABETALOL\LABETALOL HYDROCHLORIDE
     Dosage: TABLET, 100 MG (MILLIGRAM)
  10. FLUCLOXACILLINE A [Concomitant]
     Dosage: SOLUTION FOR INJECTION, 100 MG/ML (MILLIGRAM PER MILLILITER)
  11. SOMATROPINE [Concomitant]
     Active Substance: SOMATROPIN
     Dosage: POWDER SOLUTION FOR INJECTION, 10 MG (MILLIGRAM)

REACTIONS (1)
  - Hypercalcaemia [Recovered/Resolved]

NARRATIVE: CASE EVENT DATE: 20210109
